FAERS Safety Report 20307314 (Version 1)
Quarter: 2022Q1

REPORT INFORMATION
  Report Type: Spontaneous
  Country: US (occurrence: US)
  Receive Date: 20220107
  Receipt Date: 20220107
  Transmission Date: 20220423
  Serious: Yes (Other)
  Sender: FDA-Public Use
  Company Number: US-NOVOPROD-881074

PATIENT
  Sex: Female
  Weight: 122.45 kg

DRUGS (1)
  1. SAXENDA [Suspect]
     Active Substance: LIRAGLUTIDE
     Indication: Product used for unknown indication
     Dosage: UNK
     Route: 058

REACTIONS (3)
  - Autoimmune thyroiditis [Unknown]
  - Hypothyroidism [Unknown]
  - Weight loss poor [Unknown]

NARRATIVE: CASE EVENT DATE: 20210801
